FAERS Safety Report 22071247 (Version 4)
Quarter: 2023Q4

REPORT INFORMATION
  Report Type: Spontaneous
  Country: US (occurrence: US)
  Receive Date: 20230307
  Receipt Date: 20231013
  Transmission Date: 20240109
  Serious: No
  Sender: FDA-Public Use
  Company Number: US-PFIZER INC-PV202300035113

PATIENT
  Age: 62 Year
  Sex: Female

DRUGS (1)
  1. PREMARIN [Suspect]
     Active Substance: ESTROGENS, CONJUGATED
     Dosage: 1 G (1 GRAM VAGINALLY QHS FOR 14 NIGHTS, THEN INSERT 1 GRAM VAGINALLY TWICE A WEEK)
     Route: 067

REACTIONS (2)
  - Irritability [Unknown]
  - Off label use [Unknown]
